FAERS Safety Report 8285270-4 (Version None)
Quarter: 2012Q2

REPORT INFORMATION
  Report Type: 
  Country: None (occurrence: None)
  Receive Date: 20120413
  Receipt Date: 20120412
  Transmission Date: 20120825
  Serious: Yes (Hospitalization, Other)
  Sender: FDA-Public Use
  Company Number: PHHY2012KR006120

PATIENT
  Age: 36 Year
  Sex: Male

DRUGS (14)
  1. CIPROFLOXACIN HYDROCHLORIDE [Suspect]
  2. TIZANIDINE HCL [Suspect]
  3. CLONAZEPAM [Suspect]
  4. METRONIDAZOLE [Suspect]
  5. VANCOMYCIN [Suspect]
  6. ANTIBIOTICS [Suspect]
  7. CLINDAMYCIN [Suspect]
  8. IMIPENEM [Suspect]
  9. HERBAL PREPARATION [Suspect]
  10. MEROPENEM [Suspect]
  11. CEFTRIAXONE [Suspect]
  12. ANTIPLATELET [Suspect]
  13. DIURETICS [Suspect]
  14. ANTICONVULSANT [Suspect]

REACTIONS (4)
  - HAEMATURIA [None]
  - LIVER INJURY [None]
  - URINARY TRACT INFECTION [None]
  - ULCER [None]
